FAERS Safety Report 25077957 (Version 2)
Quarter: 2025Q3

REPORT INFORMATION
  Report Type: Spontaneous
  Country: RS (occurrence: RS)
  Receive Date: 20250314
  Receipt Date: 20250802
  Transmission Date: 20251020
  Serious: Yes (Death, Hospitalization, Other)
  Sender: ALEXION PHARMACEUTICALS
  Company Number: RS-ASTRAZENECA-202503BKN007202RS

PATIENT
  Sex: Female

DRUGS (1)
  1. LYNPARZA [Suspect]
     Active Substance: OLAPARIB
     Route: 065

REACTIONS (2)
  - Subarachnoid haemorrhage [Fatal]
  - Pancytopenia [Unknown]

NARRATIVE: CASE EVENT DATE: 20250214
